FAERS Safety Report 6558878-1 (Version None)
Quarter: 2010Q1

REPORT INFORMATION
  Report Type: 
  Country: None (occurrence: None)
  Receive Date: 20100129
  Receipt Date: 20100120
  Transmission Date: 20100710
  Serious: Yes (Other)
  Sender: FDA-Public Use
  Company Number: US-ABBOTT-10P-163-0620391-00

PATIENT
  Age: 71 Year
  Sex: Male

DRUGS (6)
  1. FENOFIBRATE [Suspect]
     Indication: HIGH DENSITY LIPOPROTEIN INCREASED
     Dates: start: 20010606
  2. FENOFIBRATE [Interacting]
     Dates: start: 20061110
  3. ROSIGLITAZONE [Interacting]
     Indication: DRUG USE FOR UNKNOWN INDICATION
     Dates: start: 20010927
  4. ROSIGLITAZONE [Interacting]
     Dates: start: 20010331
  5. ROSIGLITAZONE [Interacting]
     Dates: start: 20071002
  6. SIMVASTATIN [Concomitant]
     Indication: DRUG USE FOR UNKNOWN INDICATION

REACTIONS (2)
  - DRUG INTERACTION [None]
  - HIGH DENSITY LIPOPROTEIN DECREASED [None]
